FAERS Safety Report 26136495 (Version 2)
Quarter: 2025Q4

REPORT INFORMATION
  Report Type: Report from Study
  Country: US (occurrence: US)
  Receive Date: 20251209
  Receipt Date: 20251224
  Transmission Date: 20260117
  Serious: Yes (Other)
  Sender: ALEXION PHARMACEUTICALS
  Company Number: US-AstraZeneca-CH-01009823A

PATIENT
  Age: 71 Year
  Sex: Female

DRUGS (2)
  1. FASENRA [Suspect]
     Active Substance: BENRALIZUMAB
     Dosage: UNK
     Route: 065
  2. FASENRA [Suspect]
     Active Substance: BENRALIZUMAB

REACTIONS (5)
  - Bronchiectasis [Unknown]
  - Dizziness [Unknown]
  - Obstructive sleep apnoea syndrome [Unknown]
  - Tobacco abuse [Unknown]
  - Pneumonia [Unknown]

NARRATIVE: CASE EVENT DATE: 20251204
